FAERS Safety Report 20706125 (Version 1)
Quarter: 2022Q2

REPORT INFORMATION
  Report Type: Spontaneous
  Country: US (occurrence: None)
  Receive Date: 20220413
  Receipt Date: 20220413
  Transmission Date: 20220721
  Serious: Yes (Other)
  Sender: FDA-Public Use
  Company Number: None

PATIENT
  Age: 31 Year
  Sex: Female
  Weight: 96 kg

DRUGS (1)
  1. BEBTELOVIMAB [Suspect]
     Active Substance: BEBTELOVIMAB
     Indication: COVID-19
     Dosage: FREQUENCY : ONCE;?
     Route: 040
     Dates: start: 20220413, end: 20220413

REACTIONS (6)
  - Chest discomfort [None]
  - Therapy interrupted [None]
  - Erythema [None]
  - Erythema [None]
  - Dyspnoea [None]
  - Hypersensitivity [None]

NARRATIVE: CASE EVENT DATE: 20220413
